FAERS Safety Report 15034710 (Version 2)
Quarter: 2018Q3

REPORT INFORMATION
  Report Type: Spontaneous
  Country: AU (occurrence: AU)
  Receive Date: 20180620
  Receipt Date: 20180903
  Transmission Date: 20181010
  Serious: Yes (Other)
  Sender: FDA-Public Use
  Company Number: AU-AMGEN-AUSSP2018081292

PATIENT
  Sex: Male
  Weight: 4.65 kg

DRUGS (3)
  1. ROMIPLOSTIM [Suspect]
     Active Substance: ROMIPLOSTIM
     Dosage: 3.5 MCG/KG, QWK
     Route: 064
  2. ROMIPLOSTIM [Suspect]
     Active Substance: ROMIPLOSTIM
     Indication: EXPOSURE DURING PREGNANCY
     Dosage: 2.5 MCG/KG, UNK
     Route: 064
  3. ROMIPLOSTIM [Suspect]
     Active Substance: ROMIPLOSTIM
     Dosage: 350 MCG, QWK
     Route: 064

REACTIONS (3)
  - Thrombocytopenia neonatal [Recovering/Resolving]
  - Haemorrhage intracranial [Recovered/Resolved]
  - Cystic fibrosis [Unknown]
